FAERS Safety Report 20772031 (Version 2)
Quarter: 2022Q2

REPORT INFORMATION
  Report Type: Spontaneous
  Country: US (occurrence: US)
  Receive Date: 20220501
  Receipt Date: 20220609
  Transmission Date: 20220721
  Serious: Yes (Death, Hospitalization, Other)
  Sender: FDA-Public Use
  Company Number: US-CELLTRION INC.-2022US005397

PATIENT

DRUGS (6)
  1. INFLIXIMAB [Suspect]
     Active Substance: INFLIXIMAB
     Indication: Colitis
     Dosage: SINGLE DOSE OF IV INFLIXIMAB 5 MG/KGUNK
     Route: 042
  2. INFLIXIMAB [Suspect]
     Active Substance: INFLIXIMAB
     Indication: Colitis
     Dosage: SINGLE DOSE OF IV INFLIXIMAB 5 MG/KG
     Route: 042
  3. IPILIMUMAB [Suspect]
     Active Substance: IPILIMUMAB
     Indication: Renal cell carcinoma
  4. METHYLPREDNISOLONE [Suspect]
     Active Substance: METHYLPREDNISOLONE
     Indication: Colitis
     Dosage: 40MG
     Route: 042
  5. METHYLPREDNISOLONE [Suspect]
     Active Substance: METHYLPREDNISOLONE
     Dosage: 70MG ON DAY 2
     Route: 042
  6. METHYLPREDNISOLONE [Suspect]
     Active Substance: METHYLPREDNISOLONE
     Dosage: 1 MG/KG
     Route: 042

REACTIONS (7)
  - Cardiac arrest [Fatal]
  - Respiratory failure [Fatal]
  - Multiple organ dysfunction syndrome [Fatal]
  - Syncope [Unknown]
  - Hypotension [Unknown]
  - Drug ineffective [Unknown]
  - Off label use [Unknown]
